FAERS Safety Report 8881506 (Version 1)
Quarter: 2012Q4

REPORT INFORMATION
  Report Type: Report from Study
  Country: ES (occurrence: ES)
  Receive Date: 20121102
  Receipt Date: 20121102
  Transmission Date: 20130627
  Serious: Yes (Other)
  Sender: FDA-Public Use
  Company Number: ES-JNJFOC-20121014016

PATIENT
  Sex: Female

DRUGS (1)
  1. PALIPERIDONE PALMITATE [Suspect]
     Indication: SCHIZOPHRENIA
     Route: 030

REACTIONS (2)
  - Tremor [Unknown]
  - Head titubation [Unknown]
